FAERS Safety Report 5126838-3 (Version None)
Quarter: 2006Q4

REPORT INFORMATION
  Report Type: 
  Country: None (occurrence: None)
  Receive Date: 20061010
  Receipt Date: 20060925
  Transmission Date: 20070319
  Serious: Yes (Life-Threatening, Hospitalization, Other)
  Sender: FDA-Public Use
  Company Number: 2006091745

PATIENT
  Age: 48 Year
  Sex: Female
  Weight: 90.7194 kg

DRUGS (4)
  1. ARTHROTEC [Suspect]
     Indication: OSTEOARTHRITIS
     Dosage: 75 MG (75 MG, AS NECESSARY), ORAL
     Route: 048
     Dates: start: 20051101, end: 20060705
  2. ALL OTHER THERAPEUTIC PRODUCTS (ALL OTHER THERAPEUTIC PRODUCTS) [Concomitant]
  3. HYALURONIC ACID (HYALURONIC ACID) [Concomitant]
  4. VOLTAREN [Suspect]

REACTIONS (1)
  - ANAPHYLACTIC SHOCK [None]
